FAERS Safety Report 8784305 (Version 2)
Quarter: 2012Q4

REPORT INFORMATION
  Report Type: 
  Country: US (occurrence: US)
  Receive Date: 20120913
  Receipt Date: 20121003
  Transmission Date: 20130627
  Serious: No
  Sender: FDA-Public Use
  Company Number: US-PFIZER INC-2012224041

PATIENT

DRUGS (2)
  1. VIAGRA [Suspect]
     Dosage: UNK
     Dates: start: 20120707
  2. VIAGRA [Suspect]
     Dosage: 50 mg, UNK

REACTIONS (1)
  - Insomnia [Unknown]
